FAERS Safety Report 15310353 (Version 1)
Quarter: 2018Q3

REPORT INFORMATION
  Report Type: Spontaneous
  Country: US (occurrence: US)
  Receive Date: 20180813
  Receipt Date: 20180813
  Transmission Date: 20181010
  Serious: Yes (Death)
  Sender: FDA-Public Use
  Company Number: None

PATIENT
  Age: 61 Year
  Sex: Female
  Weight: 67.5 kg

DRUGS (16)
  1. MAGNEVIST [Suspect]
     Active Substance: GADOPENTETATE DIMEGLUMINE
     Indication: MALIGNANT MELANOMA
     Route: 042
     Dates: start: 20150409, end: 20160915
  2. AMIODARONE [Concomitant]
     Active Substance: AMIODARONE
  3. LORAZEPAM. [Concomitant]
     Active Substance: LORAZEPAM
  4. ONDANSETRON [Concomitant]
     Active Substance: ONDANSETRON
  5. DILTIAZEM. [Concomitant]
     Active Substance: DILTIAZEM
  6. YELLOW MERCURIC OXIDE OPTHALMIC 1% OINTMENT [Concomitant]
  7. AMPICILLIN [Concomitant]
     Active Substance: AMPICILLIN
  8. DIPHENHYDRAMINE. [Concomitant]
     Active Substance: DIPHENHYDRAMINE
  9. MULTIHANCE [Suspect]
     Active Substance: GADOBENATE DIMEGLUMINE
  10. GADAVIST [Suspect]
     Active Substance: GADOBUTROL
  11. ACETAMINOPHEN?HYDROCODONE [Concomitant]
     Active Substance: ACETAMINOPHEN\HYDROCODONE
  12. PROCHLORPERAZINE. [Concomitant]
     Active Substance: PROCHLORPERAZINE
  13. MULTIVITAMIN/MINERALS [Concomitant]
  14. OMNISCAN [Suspect]
     Active Substance: GADODIAMIDE
  15. ALKA?SELTZER [Concomitant]
     Active Substance: ANHYDROUS CITRIC ACID\ASPIRIN\SODIUM BICARBONATE
  16. DEXAMETHASONE. [Concomitant]
     Active Substance: DEXAMETHASONE

REACTIONS (5)
  - Headache [None]
  - Diarrhoea [None]
  - Rash erythematous [None]
  - Pyrexia [None]
  - Monoplegia [None]

NARRATIVE: CASE EVENT DATE: 20160824
